FAERS Safety Report 10987081 (Version 1)
Quarter: 2015Q1

REPORT INFORMATION
  Report Type: Spontaneous
  Country: US (occurrence: None)
  Receive Date: 20150316
  Receipt Date: 20150316
  Transmission Date: 20150721
  Serious: Yes (Other)
  Sender: FDA-Public Use
  Company Number: 1000070478

PATIENT
  Age: 70 Year
  Sex: Female
  Weight: 73 kg

DRUGS (8)
  1. VENTOLIN HFA (ALBUTEROL SULFATE) (AEROSOL FOR INHALATION) (ALBUTEROL SULFATE) [Concomitant]
  2. PROMETHAZINE CODEINE (PROMETHAZINE, CODEINE)( PROMETHAZINE, CODEINE) [Concomitant]
  3. MELOXICAM. [Concomitant]
     Active Substance: MELOXICAM
  4. DALIRESP [Suspect]
     Active Substance: ROFLUMILAST
     Indication: CHRONIC OBSTRUCTIVE PULMONARY DISEASE
     Route: 048
     Dates: start: 20140822, end: 20140901
  5. ALBUTEROL SULFATE (ALBUTEROL SULFATE) (AEROSOL FOR INHALATION) (ALBUTEROL SULFATE) [Concomitant]
  6. DUONEB (IPRATROPIUM BROMIDE, ALBUTEROL SULFATE) (AEROSOL FOR INHALATION) (IPRATROPIUM BROMIDE, ALBUTEROL SULFATE) [Concomitant]
  7. TUDORZA PRESSAIR (ACLIDINIUM BROMIDE) (400 MICROGRAM POWDER) (ACLIDINIUM BROMIDE) [Concomitant]
  8. SYMBICORT (BUDESONIDE W/FORMOTEROL FUMARATE) (AEROSOL FOR INHALTION) (BUDESONIDE W/FOMOTEROL FUMARATE) [Concomitant]

REACTIONS (2)
  - Suicidal ideation [None]
  - Depression [None]

NARRATIVE: CASE EVENT DATE: 20140901
